FAERS Safety Report 4406174-0 (Version None)
Quarter: 2004Q3

REPORT INFORMATION
  Report Type: 
  Country: None (occurrence: None)
  Receive Date: 20040723
  Receipt Date: 20040506
  Transmission Date: 20050211
  Serious: No
  Sender: FDA-Public Use
  Company Number: US-GLAXOSMITHKLINE-A0509824A

PATIENT
  Age: 72 Year
  Sex: Female

DRUGS (8)
  1. AVANDIA [Suspect]
     Dosage: 4MG TWICE PER DAY
     Route: 048
  2. AMARYL [Concomitant]
  3. DIGITEK [Concomitant]
  4. ALPRAZOLAM [Concomitant]
  5. PLETAL [Concomitant]
  6. ASPIRIN [Concomitant]
  7. INDERAL [Concomitant]
  8. VASOTEC [Concomitant]

REACTIONS (5)
  - BLOOD GLUCOSE INCREASED [None]
  - HEADACHE [None]
  - HYPOTENSION [None]
  - SINUSITIS [None]
  - SWELLING [None]
